FAERS Safety Report 25604962 (Version 2)
Quarter: 2025Q3

REPORT INFORMATION
  Report Type: Report from Study
  Country: US (occurrence: US)
  Receive Date: 20250725
  Receipt Date: 20250820
  Transmission Date: 20251020
  Serious: No
  Sender: SUNOVION
  Company Number: US-SUMITOMO PHARMA SWITZERLAND GMBH-2025SPA009073

PATIENT
  Age: 64 Year
  Sex: Male

DRUGS (1)
  1. ORGOVYX [Suspect]
     Active Substance: RELUGOLIX
     Indication: Prostate cancer
     Route: 048

REACTIONS (7)
  - Nasopharyngitis [Recovering/Resolving]
  - Oropharyngeal pain [Recovering/Resolving]
  - Crying [Unknown]
  - Back pain [Unknown]
  - Fatigue [Unknown]
  - Hot flush [Unknown]
  - Asthenia [Unknown]
